FAERS Safety Report 25143946 (Version 1)
Quarter: 2025Q2

REPORT INFORMATION
  Report Type: Spontaneous
  Country: US (occurrence: US)
  Receive Date: 20250401
  Receipt Date: 20250401
  Transmission Date: 20250716
  Serious: Yes (Other)
  Sender: ALEMBIC
  Company Number: US-ALEMBIC PHARMACUETICALS LIMITED-2025SCAL000242

PATIENT

DRUGS (1)
  1. TADALAFIL [Suspect]
     Active Substance: TADALAFIL
     Indication: Product used for unknown indication
     Route: 065

REACTIONS (4)
  - Cerebral vasoconstriction [Recovering/Resolving]
  - Transient ischaemic attack [Recovering/Resolving]
  - Paraesthesia [Recovering/Resolving]
  - Cerebral artery occlusion [Recovering/Resolving]
